FAERS Safety Report 6092577-8 (Version None)
Quarter: 2009Q1

REPORT INFORMATION
  Report Type: 
  Country: None (occurrence: None)
  Receive Date: 20090225
  Receipt Date: 20080306
  Transmission Date: 20090719
  Serious: No
  Sender: FDA-Public Use
  Company Number: US-BRISTOL-MYERS SQUIBB COMPANY-13974241

PATIENT
  Age: 41 Year
  Sex: Male
  Weight: 104 kg

DRUGS (5)
  1. KENALOG [Suspect]
     Indication: MUSCULOSKELETAL PAIN
     Route: 014
     Dates: start: 20071018, end: 20071019
  2. KENALOG [Suspect]
     Indication: INJURY
     Route: 014
     Dates: start: 20071018, end: 20071019
  3. MARCAINE [Suspect]
     Dosage: MARCAINE 0.5%
  4. DIOVAN [Concomitant]
  5. CLONAZEPAM [Concomitant]

REACTIONS (3)
  - FLUSHING [None]
  - HEART RATE INCREASED [None]
  - MUSCLE SPASMS [None]
